FAERS Safety Report 4530686-2 (Version None)
Quarter: 2004Q4

REPORT INFORMATION
  Report Type: 
  Country: None (occurrence: None)
  Receive Date: 20041217
  Receipt Date: 20041206
  Transmission Date: 20050328
  Serious: Yes (Hospitalization)
  Sender: FDA-Public Use
  Company Number: 200113058BWH

PATIENT
  Age: 75 Year
  Sex: Female

DRUGS (8)
  1. AMOXICILLIN + CLAVULANIC ACID [Suspect]
     Indication: ABDOMINAL INFECTION
     Dosage: 800MG TWICE PER DAY
     Route: 048
     Dates: start: 20010820, end: 20010823
  2. PIPERACILLIN + TAZOBACTAM [Suspect]
     Indication: ABDOMINAL INFECTION
     Dosage: 3.375G FOUR TIMES PER DAY
     Route: 042
     Dates: start: 20010817, end: 20010820
  3. PERCOCET [Concomitant]
     Indication: PAIN
     Route: 048
  4. CELEBREX [Concomitant]
     Indication: ARTHRITIS
     Route: 048
  5. LASIX [Concomitant]
     Indication: CARDIAC FAILURE
     Route: 048
  6. PREDNISOLONE [Concomitant]
     Indication: COLITIS
     Route: 048
  7. RANITIDINE [Concomitant]
     Indication: GASTROOESOPHAGEAL REFLUX DISEASE
     Route: 048
  8. CALCITRIOL [Concomitant]
     Indication: HYPOCALCAEMIA
     Route: 048

REACTIONS (6)
  - ABDOMINAL DISTENSION [None]
  - HAEMOGLOBIN DECREASED [None]
  - ILEUS [None]
  - ILEUS PARALYTIC [None]
  - INTESTINAL DILATATION [None]
  - PAIN [None]
